FAERS Safety Report 6649021-9 (Version None)
Quarter: 2010Q1

REPORT INFORMATION
  Report Type: 
  Country: None (occurrence: None)
  Receive Date: 20100324
  Receipt Date: 20100319
  Transmission Date: 20100710
  Serious: Yes (Life-Threatening, Other)
  Sender: FDA-Public Use
  Company Number: US-MERCK-1003USA03081

PATIENT
  Age: 75 Year
  Sex: Female

DRUGS (10)
  1. HYZAAR [Suspect]
     Indication: HYPERTENSION
     Route: 048
     Dates: start: 20060101, end: 20100116
  2. HYZAAR [Suspect]
     Route: 048
     Dates: start: 20100117, end: 20100128
  3. HYZAAR [Suspect]
     Route: 048
     Dates: start: 20100129, end: 20100211
  4. HYZAAR [Suspect]
     Route: 048
     Dates: start: 20100212, end: 20100301
  5. HYZAAR [Suspect]
     Route: 048
     Dates: start: 20100301
  6. OMEGA-3 MARINE TRIGLYCERIDES [Concomitant]
     Route: 065
  7. VITAMIN D (UNSPECIFIED) [Concomitant]
     Route: 065
  8. CALCIUM (UNSPECIFIED) [Concomitant]
     Route: 065
  9. MAGNESIUM (UNSPECIFIED) [Concomitant]
     Route: 065
  10. CLONIDINE [Concomitant]
     Route: 065

REACTIONS (5)
  - BLOOD PRESSURE INCREASED [None]
  - DYSPNOEA [None]
  - FEELING ABNORMAL [None]
  - FEELING DRUNK [None]
  - TINNITUS [None]
